FAERS Safety Report 10725534 (Version 1)
Quarter: 2015Q1

REPORT INFORMATION
  Report Type: Spontaneous
  Country: US (occurrence: US)
  Receive Date: 20150121
  Receipt Date: 20150121
  Transmission Date: 20150721
  Serious: No
  Sender: FDA-Public Use
  Company Number: US-GLAXOSMITHKLINE-US2015GSK006409

PATIENT
  Age: 50 Year
  Sex: Female

DRUGS (5)
  1. LORAZEPAM. [Concomitant]
     Active Substance: LORAZEPAM
  2. VENTOLIN [Suspect]
     Active Substance: ALBUTEROL SULFATE
     Indication: ALLERGIC RESPIRATORY DISEASE
     Dosage: 1-2 PUFF, PRN
     Dates: start: 201308
  3. ADVIL [Concomitant]
     Active Substance: IBUPROFEN
  4. LAMICTAL [Concomitant]
     Active Substance: LAMOTRIGINE
  5. PAIN PATCH (UNKNOWN) [Concomitant]

REACTIONS (1)
  - Palpitations [Recovering/Resolving]

NARRATIVE: CASE EVENT DATE: 201308
